FAERS Safety Report 6678344-2 (Version None)
Quarter: 2010Q2

REPORT INFORMATION
  Report Type: 
  Country: None (occurrence: None)
  Receive Date: 20100413
  Receipt Date: 20100401
  Transmission Date: 20101027
  Serious: Yes (Hospitalization)
  Sender: FDA-Public Use
  Company Number: US-BIOGENIDEC-2010BI011072

PATIENT
  Age: 25 Year
  Sex: Male

DRUGS (6)
  1. TYSABRI [Suspect]
     Indication: MULTIPLE SCLEROSIS
     Route: 042
     Dates: start: 20091211, end: 20100209
  2. CELEXA [Concomitant]
     Indication: DEPRESSION
  3. XANAX [Concomitant]
     Indication: DEPRESSION
  4. TYLENOL (NUMBER 6) [Concomitant]
  5. DARVOCET-N 100 [Concomitant]
     Indication: BACK PAIN
  6. SOMA [Concomitant]

REACTIONS (8)
  - ASTHENIA [None]
  - BONE PAIN [None]
  - GASTRITIS [None]
  - HYPOAESTHESIA [None]
  - MUSCULAR WEAKNESS [None]
  - NECK PAIN [None]
  - PAIN IN EXTREMITY [None]
  - PHARYNGEAL ABSCESS [None]
